FAERS Safety Report 6569868-7 (Version None)
Quarter: 2010Q1

REPORT INFORMATION
  Report Type: 
  Country: None (occurrence: None)
  Receive Date: 20100204
  Receipt Date: 20100125
  Transmission Date: 20100710
  Serious: Yes (Other)
  Sender: FDA-Public Use
  Company Number: PHHY2010IT04838

PATIENT
  Age: 39 Year
  Sex: Female

DRUGS (3)
  1. CYCLOSPORINE [Suspect]
     Indication: TRANSPLANT
     Dosage: 5 MG/KG/DAILY
     Route: 048
  2. AZATHIOPRINE [Suspect]
     Indication: TRANSPLANT
     Dosage: 3 MG/KG/DAILY
  3. METHYLPREDNISOLONE [Suspect]
     Indication: TRANSPLANT
     Dosage: 40 MG/DAILY
     Route: 050

REACTIONS (9)
  - ABSCESS LIMB [None]
  - ATAXIA [None]
  - DYSTONIA [None]
  - HUNTINGTON'S CHOREA [None]
  - INFECTION [None]
  - LEUKOPENIA [None]
  - PYREXIA [None]
  - SURGERY [None]
  - WEIGHT DECREASED [None]
